FAERS Safety Report 8516828-2 (Version None)
Quarter: 2012Q3

REPORT INFORMATION
  Report Type: 
  Country: None (occurrence: None)
  Receive Date: 20120718
  Receipt Date: 20120709
  Transmission Date: 20120928
  Serious: Yes (Hospitalization)
  Sender: FDA-Public Use
  Company Number: BE-SANOFI-AVENTIS-2012SA048742

PATIENT
  Age: 78 Year
  Sex: Male
  Weight: 79 kg

DRUGS (13)
  1. ASPIRIN [Concomitant]
     Route: 048
  2. ACETAMINOPHEN [Concomitant]
     Dosage: STRENGTH; 1 G
     Route: 048
     Dates: start: 20120503
  3. DUOVENT [Concomitant]
     Indication: CHRONIC OBSTRUCTIVE PULMONARY DISEASE
     Dosage: 1.25MG/0.50MG
     Route: 055
     Dates: start: 20120503
  4. CARVEDILOL [Concomitant]
     Indication: HYPERTENSION
     Dosage: STRENGTH; 6.25 MG
     Route: 048
  5. LASIX [Concomitant]
     Dosage: STRENGTH; 20 MG
     Route: 048
     Dates: start: 20120503
  6. ONBREZ BREEZHALER [Concomitant]
     Route: 055
     Dates: start: 20120510
  7. PANTOPRAZOLE [Concomitant]
     Dosage: STRENGTH; 22.55MG
     Route: 048
  8. SIMVASTATIN [Concomitant]
     Dosage: STRENGTH; 20 MG
     Route: 048
  9. ENOXAPARIN SODIUM [Suspect]
     Indication: ATRIAL FIBRILLATION
     Route: 058
     Dates: start: 20120503, end: 20120513
  10. PIPERACILLIN AND TAZOBACTAM [Concomitant]
     Indication: SEPSIS
     Dosage: STRENGTH; 4G/500MG
     Route: 042
     Dates: start: 20120507
  11. ACETAMINOPHEN [Concomitant]
     Indication: PAIN
     Dosage: STRENGTH; 1 G
     Route: 048
     Dates: start: 20120503
  12. AUGMENTIN '500' [Concomitant]
     Indication: SEPSIS
     Dosage: STRENGTH; 1000MG/200 MG
     Route: 048
     Dates: start: 20120503, end: 20120507
  13. CARVEDILOL [Concomitant]
     Indication: ATRIAL FIBRILLATION
     Dosage: STRENGTH; 6.25 MG
     Route: 048

REACTIONS (3)
  - BLADDER DILATATION [None]
  - POSTRENAL FAILURE [None]
  - RETROPERITONEAL HAEMORRHAGE [None]
